FAERS Safety Report 4713942-4 (Version None)
Quarter: 2005Q3

REPORT INFORMATION
  Report Type: 
  Country: None (occurrence: None)
  Receive Date: 20050713
  Receipt Date: 20050624
  Transmission Date: 20060218
  Serious: Yes (Life-Threatening, Hospitalization)
  Sender: FDA-Public Use
  Company Number: AU_050608682

PATIENT
  Age: 73 Year
  Sex: Female

DRUGS (1)
  1. EVISTA [Suspect]
     Dates: start: 20030201, end: 20040201

REACTIONS (4)
  - FALL [None]
  - GAIT DISTURBANCE [None]
  - HAEMORRHAGIC STROKE [None]
  - OSTEOPOROSIS [None]
